FAERS Safety Report 7947979 (Version 4)
Quarter: 2013Q4

REPORT INFORMATION
  Report Type: Report from Study
  Country: FR (occurrence: FR)
  Receive Date: 20110517
  Receipt Date: 20131212
  Transmission Date: 20140711
  Serious: Yes (Hospitalization)
  Sender: FDA-Public Use
  Company Number: FR-BIOGENIDEC-2011BI016849

PATIENT
  Age: 37 Year
  Sex: Male
  Weight: 98 kg

DRUGS (1)
  1. AVONEX [Suspect]
     Indication: MULTIPLE SCLEROSIS
     Dates: start: 20110427, end: 20110513

REACTIONS (2)
  - Pericarditis [Recovered/Resolved]
  - Pleurisy [Recovered/Resolved]
